FAERS Safety Report 11472214 (Version 1)
Quarter: 2015Q3

REPORT INFORMATION
  Report Type: Spontaneous
  Country: US (occurrence: US)
  Receive Date: 20150908
  Receipt Date: 20150908
  Transmission Date: 20151125
  Serious: No
  Sender: FDA-Public Use
  Company Number: US-SA-2015SA076155

PATIENT
  Age: 59 Year
  Sex: Female

DRUGS (3)
  1. SOLOSTAR [Concomitant]
     Active Substance: DEVICE
  2. INSULIN [Concomitant]
     Active Substance: INSULIN NOS
  3. TOUJEO [Suspect]
     Active Substance: INSULIN GLARGINE
     Dosage: DOSE:30 UNIT(S)
     Route: 065

REACTIONS (1)
  - Blood glucose increased [Unknown]
